FAERS Safety Report 8447645-X (Version None)
Quarter: 2012Q2

REPORT INFORMATION
  Report Type: 
  Country: None (occurrence: None)
  Receive Date: 20120619
  Receipt Date: 20120611
  Transmission Date: 20120825
  Serious: Yes (Life-Threatening)
  Sender: FDA-Public Use
  Company Number: HU-BRISTOL-MYERS SQUIBB COMPANY-16676702

PATIENT
  Age: 74 Year
  Sex: Male

DRUGS (12)
  1. TEGAFUR + GIMERACIL + OTERACIL POTASSIUM [Suspect]
     Indication: GASTRIC CANCER
     Dates: start: 20110410
  2. METFORMIN HCL [Concomitant]
     Indication: TYPE 2 DIABETES MELLITUS
  3. AMANTADINE HCL [Concomitant]
     Indication: PARKINSON'S DISEASE
     Dates: start: 20110101
  4. PENTOXIFYLLINE [Concomitant]
     Indication: HYPERTENSION
     Dates: start: 19960101
  5. CISPLATIN [Suspect]
     Indication: GASTRIC CANCER
     Dosage: 18APR12-18APR12 :121.2MG, 1 IN 28DAYS
     Route: 042
     Dates: start: 20110410, end: 20120321
  6. BENFOTIAMINE [Concomitant]
     Indication: DIABETIC NEUROPATHY
     Dates: start: 19960101
  7. SELEGILINE [Concomitant]
     Indication: PARKINSON'S DISEASE
     Dates: start: 20110101
  8. CALCIUM DOBESILATE [Concomitant]
     Dates: start: 19960101
  9. ONDANSETRON HCL [Concomitant]
     Indication: PREMEDICATION
     Dates: start: 20111110
  10. COSOPT [Concomitant]
     Indication: GLAUCOMA
     Dates: start: 20010101
  11. OCULOTECT FLUID [Concomitant]
     Indication: GLAUCOMA
     Route: 047
     Dates: start: 20110101
  12. GLICLAZIDE [Concomitant]
     Indication: TYPE 2 DIABETES MELLITUS
     Dates: start: 19960101

REACTIONS (1)
  - ANAEMIA [None]
